FAERS Safety Report 7252477-4 (Version None)
Quarter: 2011Q1

REPORT INFORMATION
  Report Type: 
  Country: None (occurrence: None)
  Receive Date: 20110129
  Receipt Date: 20100104
  Transmission Date: 20110831
  Serious: No
  Sender: FDA-Public Use
  Company Number: US-ABBOTT-10P-163-0617945-00

PATIENT
  Sex: Male

DRUGS (3)
  1. HUMIRA [Suspect]
     Dosage: VARYING DOSES 1-3 WEEKS
     Dates: start: 20090901
  2. HUMIRA [Suspect]
     Indication: ARTHRITIS
     Dates: start: 20090515, end: 20090901
  3. PREDNISONE [Concomitant]
     Dosage: VARYING DOSES

REACTIONS (3)
  - INJECTION SITE PAIN [None]
  - ARTHRALGIA [None]
  - DRUG EFFECT DECREASED [None]
